FAERS Safety Report 10509257 (Version 1)
Quarter: 2014Q4

REPORT INFORMATION
  Report Type: Spontaneous
  Country: US (occurrence: US)
  Receive Date: 20141009
  Receipt Date: 20141009
  Transmission Date: 20150528
  Serious: Yes (Other)
  Sender: FDA-Public Use
  Company Number: US-PERRIGO-14US009907

PATIENT
  Sex: Male

DRUGS (2)
  1. LORAZEPAM CONCENTRATE RX 2 MG/ML 1J9 [Suspect]
     Active Substance: LORAZEPAM
     Indication: ANALGESIC THERAPY
     Dosage: 2 MG, SINGLE
     Route: 065
  2. HYDROMORPHONE [Suspect]
     Active Substance: HYDROMORPHONE
     Indication: ANALGESIC THERAPY
     Dosage: UNKNOWN, UNKNOWN
     Route: 042

REACTIONS (1)
  - Respiratory rate decreased [Recovering/Resolving]
